FAERS Safety Report 6526503-1 (Version None)
Quarter: 2010Q1

REPORT INFORMATION
  Report Type: 
  Country: None (occurrence: None)
  Receive Date: 20100105
  Receipt Date: 20091224
  Transmission Date: 20100710
  Serious: Yes (Life-Threatening, Hospitalization)
  Sender: FDA-Public Use
  Company Number: US-BRISTOL-MYERS SQUIBB COMPANY-14884605

PATIENT
  Age: 55 Year
  Sex: Male

DRUGS (4)
  1. DOXORUBICIN HCL [Suspect]
     Indication: HODGKIN'S DISEASE
  2. BLEOMYCIN SULFATE [Suspect]
     Indication: HODGKIN'S DISEASE
  3. DACARBAZINE [Suspect]
     Indication: HODGKIN'S DISEASE
  4. VINBLASTINE [Suspect]
     Indication: HODGKIN'S DISEASE

REACTIONS (2)
  - RESPIRATORY DISTRESS [None]
  - SEPSIS [None]
